FAERS Safety Report 9517410 (Version 1)
Quarter: 2013Q3

REPORT INFORMATION
  Report Type: Spontaneous
  Country: US (occurrence: US)
  Receive Date: 20130911
  Receipt Date: 20130911
  Transmission Date: 20140515
  Serious: Yes (Disabling, Other)
  Sender: FDA-Public Use
  Company Number: US-UCBSA-096633

PATIENT
  Sex: 0

DRUGS (1)
  1. VIMPAT [Suspect]
     Indication: CONVULSION
     Dosage: UNKNOWN DOSE

REACTIONS (4)
  - Brain operation [Unknown]
  - Spinal cord disorder [Unknown]
  - Impaired work ability [Unknown]
  - Drug ineffective [Unknown]
